FAERS Safety Report 19083301 (Version 4)
Quarter: 2021Q2

REPORT INFORMATION
  Report Type: Spontaneous
  Country: US (occurrence: US)
  Receive Date: 20210401
  Receipt Date: 20210607
  Transmission Date: 20210717
  Serious: Yes (Hospitalization, Other)
  Sender: FDA-Public Use
  Company Number: US-PFIZER INC-2021313773

PATIENT
  Age: 71 Year
  Sex: Male
  Weight: 98.43 kg

DRUGS (4)
  1. DILANTIN [Suspect]
     Active Substance: PHENYTOIN
     Dosage: 100 MG, 2X/DAY (HE TOOK ONE IN THE MORNING AND ONE IN THE AFTERNOON)
     Dates: start: 20210317, end: 20210318
  2. PRIMIDONE. [Concomitant]
     Active Substance: PRIMIDONE
     Indication: SEIZURE
     Dosage: 250 MG, 2X/DAY
  3. CHLORDIAZEPOXIDE. [Concomitant]
     Active Substance: CHLORDIAZEPOXIDE
     Indication: SEIZURE
     Dosage: 10 MG
  4. DILANTIN [Suspect]
     Active Substance: PHENYTOIN
     Indication: EPILEPSY
     Dosage: 500 MG, DAILY
     Dates: end: 20210315

REACTIONS (5)
  - Muscular weakness [Unknown]
  - Hypoaesthesia [Unknown]
  - Asthenia [Unknown]
  - Drug level increased [Unknown]
  - Toxicity to various agents [Unknown]

NARRATIVE: CASE EVENT DATE: 20210315
